FAERS Safety Report 15784383 (Version 2)
Quarter: 2022Q2

REPORT INFORMATION
  Report Type: Spontaneous
  Country: US (occurrence: None)
  Receive Date: 20190103
  Receipt Date: 20220517
  Transmission Date: 20220720
  Serious: Yes (Hospitalization, Other)
  Sender: FDA-Public Use
  Company Number: 2018SF70912

PATIENT
  Age: 18420 Day
  Sex: Female

DRUGS (89)
  1. NEXIUM [Suspect]
     Active Substance: ESOMEPRAZOLE MAGNESIUM
     Indication: Gastrooesophageal reflux disease
     Route: 048
     Dates: start: 201006, end: 201009
  2. NEXIUM [Suspect]
     Active Substance: ESOMEPRAZOLE MAGNESIUM
     Indication: Gastrooesophageal reflux disease
     Dosage: 40.0MG UNKNOWN
     Route: 048
     Dates: start: 20101014
  3. VIMOVO [Suspect]
     Active Substance: ESOMEPRAZOLE MAGNESIUM\NAPROXEN
     Indication: Gastrooesophageal reflux disease
     Route: 048
     Dates: start: 1998
  4. PRILOSEC [Suspect]
     Active Substance: OMEPRAZOLE MAGNESIUM
     Indication: Gastrooesophageal reflux disease
     Route: 048
  5. PRILOSEC [Suspect]
     Active Substance: OMEPRAZOLE MAGNESIUM
     Indication: Gastrooesophageal reflux disease
     Dosage: GENERIC
     Route: 065
     Dates: start: 201404, end: 201507
  6. PRILOSEC [Suspect]
     Active Substance: OMEPRAZOLE MAGNESIUM
     Indication: Gastrooesophageal reflux disease
     Dosage: GENERIC
     Route: 065
     Dates: start: 201507
  7. PRILOSEC [Suspect]
     Active Substance: OMEPRAZOLE MAGNESIUM
     Indication: Gastrooesophageal reflux disease
     Dosage: GENERIC40.0MG UNKNOWN
     Route: 065
     Dates: start: 20051031
  8. DEXILANT [Suspect]
     Active Substance: DEXLANSOPRAZOLE
     Indication: Gastrooesophageal reflux disease
     Route: 065
     Dates: start: 201012, end: 201205
  9. DEXILANT [Suspect]
     Active Substance: DEXLANSOPRAZOLE
     Indication: Gastrooesophageal reflux disease
     Dosage: 60.0MG UNKNOWN
     Route: 065
     Dates: start: 20120410
  10. PROTONIX [Suspect]
     Active Substance: PANTOPRAZOLE SODIUM
     Indication: Peptic ulcer
     Route: 065
     Dates: start: 200311, end: 201004
  11. PROTONIX [Suspect]
     Active Substance: PANTOPRAZOLE SODIUM
     Indication: Gastrooesophageal reflux disease
     Route: 065
     Dates: start: 200311, end: 201004
  12. PROTONIX [Suspect]
     Active Substance: PANTOPRAZOLE SODIUM
     Indication: Peptic ulcer
     Dosage: GENERIC
     Route: 065
     Dates: start: 201303, end: 201311
  13. PROTONIX [Suspect]
     Active Substance: PANTOPRAZOLE SODIUM
     Indication: Gastrooesophageal reflux disease
     Dosage: GENERIC
     Route: 065
     Dates: start: 201303, end: 201311
  14. PROTONIX [Suspect]
     Active Substance: PANTOPRAZOLE SODIUM
     Indication: Peptic ulcer
     Dosage: GENERIC
     Route: 065
     Dates: start: 201401, end: 201404
  15. PROTONIX [Suspect]
     Active Substance: PANTOPRAZOLE SODIUM
     Indication: Gastrooesophageal reflux disease
     Dosage: GENERIC
     Route: 065
     Dates: start: 201401, end: 201404
  16. PROTONIX [Suspect]
     Active Substance: PANTOPRAZOLE SODIUM
     Indication: Peptic ulcer
     Dosage: GENERIC
     Route: 065
     Dates: start: 201405, end: 201412
  17. PROTONIX [Suspect]
     Active Substance: PANTOPRAZOLE SODIUM
     Indication: Gastrooesophageal reflux disease
     Dosage: GENERIC
     Route: 065
     Dates: start: 201405, end: 201412
  18. PROTONIX [Suspect]
     Active Substance: PANTOPRAZOLE SODIUM
     Indication: Peptic ulcer
     Dosage: GENERIC
     Route: 065
     Dates: start: 201412, end: 201503
  19. PROTONIX [Suspect]
     Active Substance: PANTOPRAZOLE SODIUM
     Indication: Gastrooesophageal reflux disease
     Dosage: GENERIC
     Route: 065
     Dates: start: 201412, end: 201503
  20. PROTONIX [Suspect]
     Active Substance: PANTOPRAZOLE SODIUM
     Indication: Peptic ulcer
     Dosage: 40.0MG UNKNOWN
     Route: 065
     Dates: start: 20070315
  21. PROTONIX [Suspect]
     Active Substance: PANTOPRAZOLE SODIUM
     Indication: Gastrooesophageal reflux disease
     Dosage: 40.0MG UNKNOWN
     Route: 065
     Dates: start: 20070315
  22. PROTONIX [Suspect]
     Active Substance: PANTOPRAZOLE SODIUM
     Indication: Peptic ulcer
     Dosage: GENERIC40.0MG UNKNOWN
     Route: 065
     Dates: start: 20130927
  23. PROTONIX [Suspect]
     Active Substance: PANTOPRAZOLE SODIUM
     Indication: Gastrooesophageal reflux disease
     Dosage: GENERIC40.0MG UNKNOWN
     Route: 065
     Dates: start: 20130927
  24. ASPIRIN [Concomitant]
     Active Substance: ASPIRIN
     Indication: Myocardial infarction
     Dosage: 325.0MG UNKNOWN
     Dates: start: 200505, end: 201701
  25. ASPIRIN [Concomitant]
     Active Substance: ASPIRIN
     Indication: Myocardial infarction
     Dosage: 81.0MG UNKNOWN
     Dates: start: 201701
  26. ACETAMINOPHEN [Concomitant]
     Active Substance: ACETAMINOPHEN
     Indication: Arthritis
     Dosage: 10-325
     Dates: start: 2008
  27. ACETAMINOPHEN [Concomitant]
     Active Substance: ACETAMINOPHEN
     Indication: Pain
     Dosage: 10-325
     Dates: start: 2008
  28. BIOTIN [Concomitant]
     Active Substance: BIOTIN
     Indication: Hair disorder
     Dates: start: 2015
  29. CALCIUM [Concomitant]
     Active Substance: CALCIUM
     Indication: Calcium deficiency
     Dates: start: 2007
  30. ZANTAC [Concomitant]
     Active Substance: RANITIDINE HYDROCHLORIDE
     Dates: start: 1992, end: 1998
  31. ZANTAC [Concomitant]
     Active Substance: RANITIDINE HYDROCHLORIDE
     Dosage: GENERIC
     Dates: start: 1992, end: 1998
  32. TAGAMET [Concomitant]
     Active Substance: CIMETIDINE
     Dosage: 400.0MG UNKNOWN
     Dates: start: 1998, end: 2000
  33. TAGAMET [Concomitant]
     Active Substance: CIMETIDINE
     Dosage: GENERIC UNKNOWN
     Dates: start: 1998, end: 2000
  34. TUMS [Concomitant]
     Active Substance: CALCIUM CARBONATE
     Dosage: 3 TABLET AS NEEDED
     Dates: start: 2000
  35. FUROSEMIDE [Concomitant]
     Active Substance: FUROSEMIDE
     Route: 048
  36. LEVOTHYROXINE [Concomitant]
     Active Substance: LEVOTHYROXINE
     Route: 042
     Dates: start: 20131129
  37. DICYCLOMINE [Concomitant]
     Active Substance: DICYCLOMINE HYDROCHLORIDE
     Route: 048
     Dates: start: 20150427
  38. SOMA [Concomitant]
     Active Substance: CARISOPRODOL
     Route: 048
     Dates: start: 20130918
  39. BACLOFEN [Concomitant]
     Active Substance: BACLOFEN
     Dosage: 10.0MG UNKNOWN
     Route: 048
     Dates: start: 20130909
  40. NASONEX [Concomitant]
     Active Substance: MOMETASONE FUROATE
     Dosage: NASAL SPRAY 50 MCG/INH
  41. BUSPIRONE [Concomitant]
     Active Substance: BUSPIRONE HYDROCHLORIDE
     Route: 048
     Dates: start: 20130927
  42. SENOKOT [Concomitant]
     Active Substance: SENNOSIDES
     Route: 048
  43. FOLIC ACID [Concomitant]
     Active Substance: FOLIC ACID
     Route: 048
     Dates: start: 20130930
  44. LIPITOR [Concomitant]
     Active Substance: ATORVASTATIN CALCIUM
     Route: 048
     Dates: start: 20050507
  45. PLAVIX [Concomitant]
     Active Substance: CLOPIDOGREL BISULFATE
     Route: 048
     Dates: start: 20071219
  46. ERGOCALCIFEROL [Concomitant]
     Active Substance: ERGOCALCIFEROL
     Dosage: 50,000 INTL UNITS
     Route: 048
  47. ALENDRONATE [Concomitant]
     Active Substance: ALENDRONATE SODIUM
     Route: 048
     Dates: start: 20130910
  48. CYMBALTA [Concomitant]
     Active Substance: DULOXETINE HYDROCHLORIDE
     Route: 048
     Dates: start: 20131012
  49. COZAAR [Concomitant]
     Active Substance: LOSARTAN POTASSIUM
     Route: 048
     Dates: start: 20071219
  50. ROPINIROLE [Concomitant]
     Active Substance: ROPINIROLE
     Route: 048
     Dates: start: 20110811
  51. FIORICET [Concomitant]
     Active Substance: ACETAMINOPHEN\BUTALBITAL\CAFFEINE
     Dosage: 325 MG-50MG-40 MG
     Route: 048
  52. TRILIPIX [Concomitant]
     Active Substance: FENOFIBRIC ACID
     Route: 048
  53. NITROGLYCERIN [Concomitant]
     Active Substance: NITROGLYCERIN
     Dosage: 0.4MG UNKNOWN
     Route: 060
  54. ATIVAN [Concomitant]
     Active Substance: LORAZEPAM
     Route: 048
     Dates: start: 20110427
  55. DEMEPROL [Concomitant]
  56. ACETAMINOPHEN\OXYCODONE HYDROCHLORIDE [Concomitant]
     Active Substance: ACETAMINOPHEN\OXYCODONE HYDROCHLORIDE
  57. TRICOR [Concomitant]
     Active Substance: FENOFIBRATE
  58. METOPROLOL [Concomitant]
     Active Substance: METOPROLOL
  59. MIRABEGRON [Concomitant]
     Active Substance: MIRABEGRON
  60. POTASSIUM CHLORIDE [Concomitant]
     Active Substance: POTASSIUM CHLORIDE
  61. CEFDINIR [Concomitant]
     Active Substance: CEFDINIR
  62. SULFADIAZINE [Concomitant]
     Active Substance: SULFADIAZINE
  63. LEVOXYL [Concomitant]
     Active Substance: LEVOTHYROXINE SODIUM
  64. METOPROLOL SUCCINATE [Concomitant]
     Active Substance: METOPROLOL SUCCINATE
  65. FERROUS SULFATE [Concomitant]
     Active Substance: FERROUS SULFATE
  66. BRILINTA [Concomitant]
     Active Substance: TICAGRELOR
  67. CYCLOBENZAPRINE [Concomitant]
     Active Substance: CYCLOBENZAPRINE
  68. SODIUM CHLORIDE [Concomitant]
     Active Substance: SODIUM CHLORIDE
  69. UNSPECIFIED INGREDIENT [Concomitant]
     Active Substance: UNSPECIFIED INGREDIENT
  70. ZOSYN [Concomitant]
     Active Substance: PIPERACILLIN SODIUM\TAZOBACTAM SODIUM
  71. DECADRON [Concomitant]
     Active Substance: DEXAMETHASONE
  72. CEFAZOLIN [Concomitant]
     Active Substance: CEFAZOLIN
  73. LIDOCAINE [Concomitant]
     Active Substance: LIDOCAINE
  74. HYDRALAZINE [Concomitant]
     Active Substance: HYDRALAZINE HYDROCHLORIDE
  75. LACTATED RINGERS SOLUTION [Concomitant]
     Active Substance: CALCIUM CHLORIDE\POTASSIUM CHLORIDE\SODIUM CHLORIDE\SODIUM LACTATE
  76. PHENERGAN [Concomitant]
     Active Substance: PROMETHAZINE HYDROCHLORIDE
  77. PERICOLACE [Concomitant]
  78. OXYBUTYNIN [Concomitant]
     Active Substance: OXYBUTYNIN
  79. CLOPIDOGREL [Concomitant]
     Active Substance: CLOPIDOGREL BISULFATE
  80. DETROL [Concomitant]
     Active Substance: TOLTERODINE TARTRATE
  81. REGLAN [Concomitant]
     Active Substance: METOCLOPRAMIDE HYDROCHLORIDE
  82. CLARITIN [Concomitant]
     Active Substance: LORATADINE
  83. LYRICA [Concomitant]
     Active Substance: PREGABALIN
  84. PNEUMOVAX 23 [Concomitant]
     Active Substance: PNEUMOCOCCAL VACCINE, POLYVALENT 23
  85. OLMESARTAN MEDOXOMIL [Concomitant]
     Active Substance: OLMESARTAN MEDOXOMIL
  86. AMOXICILLIN\CLAVULANATE POTASSIUM [Concomitant]
     Active Substance: AMOXICILLIN\CLAVULANATE POTASSIUM
  87. VIOXX [Concomitant]
     Active Substance: ROFECOXIB
  88. HYZAAR [Concomitant]
     Active Substance: HYDROCHLOROTHIAZIDE\LOSARTAN POTASSIUM
  89. FLAGYL [Concomitant]
     Active Substance: METRONIDAZOLE\METRONIDAZOLE HYDROCHLORIDE

REACTIONS (6)
  - Chronic kidney disease [Not Recovered/Not Resolved]
  - Renal failure [Unknown]
  - Acute kidney injury [Unknown]
  - Nephrogenic anaemia [Unknown]
  - Chronic kidney disease-mineral and bone disorder [Unknown]
  - Renal tubular necrosis [Unknown]

NARRATIVE: CASE EVENT DATE: 20140807
